FAERS Safety Report 9191049 (Version 1)
Quarter: 2013Q1

REPORT INFORMATION
  Report Type: Spontaneous
  Country: GB (occurrence: GB)
  Receive Date: 20130326
  Receipt Date: 20130326
  Transmission Date: 20140127
  Serious: Yes (Other)
  Sender: FDA-Public Use
  Company Number: GB-MERCK-1303GBR012431

PATIENT
  Age: 60 Year
  Sex: Male
  Weight: 117 kg

DRUGS (11)
  1. NASONEX [Suspect]
     Indication: SEASONAL ALLERGY
     Dosage: 2 DF, QD
     Route: 045
     Dates: start: 20070101, end: 20130201
  2. ASPIRIN [Concomitant]
  3. ATORVASTATIN [Concomitant]
  4. BYETTA [Concomitant]
  5. AMOXICILLIN (+) CLAVULANATE POTASSIUM [Concomitant]
  6. FUROSEMIDE [Concomitant]
  7. GLUCOPHAGE [Concomitant]
  8. ISOSORBIDE MONONITRATE [Concomitant]
  9. LANTUS [Concomitant]
  10. LOSARTAN POTASSIUM 100MG [Concomitant]
  11. OMEPRAZOLE [Concomitant]

REACTIONS (4)
  - Cataract [Unknown]
  - Intraocular pressure increased [Not Recovered/Not Resolved]
  - Vision blurred [Unknown]
  - Age-related macular degeneration [Unknown]
